FAERS Safety Report 8242564-6 (Version None)
Quarter: 2012Q1

REPORT INFORMATION
  Report Type: 
  Country: None (occurrence: None)
  Receive Date: 20120329
  Receipt Date: 20090924
  Transmission Date: 20120608
  Serious: Yes (Other)
  Sender: FDA-Public Use
  Company Number: IT-CELGENEUS-083-21880-12020768

PATIENT

DRUGS (2)
  1. DEXAMETHASONE [Concomitant]
     Route: 065
     Dates: start: 20080725, end: 20080920
  2. REVLIMID [Suspect]
     Indication: MYELOMA RECURRENCE
     Dosage: 15 MILLIGRAM
     Route: 048
     Dates: start: 20080720, end: 20080805

REACTIONS (4)
  - DECREASED APPETITE [None]
  - ATAXIA [None]
  - VERTIGO [None]
  - MALAISE [None]
